FAERS Safety Report 7778672-3 (Version None)
Quarter: 2011Q3

REPORT INFORMATION
  Report Type: 
  Country: None (occurrence: None)
  Receive Date: 20110926
  Receipt Date: 20110914
  Transmission Date: 20111222
  Serious: Yes (Other)
  Sender: FDA-Public Use
  Company Number: US-BAYER-2010-004870

PATIENT
  Sex: Female

DRUGS (6)
  1. NASACORT [Concomitant]
  2. YAZ [Suspect]
     Indication: CONTRACEPTION
     Dosage: UNK
     Dates: start: 20060101, end: 20070101
  3. ZOLOFT [Concomitant]
     Dosage: UNK
     Dates: start: 20050101, end: 20060101
  4. YASMIN [Suspect]
     Indication: CONTRACEPTION
     Dosage: UNK
     Dates: start: 20050101, end: 20060101
  5. LISINOPRIL [Concomitant]
     Dosage: UNK
     Dates: start: 20020101
  6. LEVOTHYROXINE SODIUM [Concomitant]
     Dosage: UNK
     Dates: start: 19950101

REACTIONS (5)
  - CHOLECYSTITIS CHRONIC [None]
  - EMOTIONAL DISTRESS [None]
  - ABDOMINAL PAIN [None]
  - CHOLELITHIASIS [None]
  - ANXIETY [None]
